FAERS Safety Report 11730342 (Version 6)
Quarter: 2017Q4

REPORT INFORMATION
  Report Type: Spontaneous
  Country: FR (occurrence: FR)
  Receive Date: 20151112
  Receipt Date: 20171024
  Transmission Date: 20180320
  Serious: Yes (Congenital Anomaly, Other)
  Sender: FDA-Public Use
  Company Number: FR-ABBVIE-15P-056-1498737-00

PATIENT
  Sex: Male

DRUGS (1)
  1. DEPAKINE [Suspect]
     Active Substance: VALPROATE SODIUM
     Indication: MATERNAL EXPOSURE TIMING UNSPECIFIED
     Route: 064

REACTIONS (23)
  - Psychomotor retardation [Unknown]
  - Speech disorder developmental [Unknown]
  - Inguinal hernia [Unknown]
  - Developmental delay [Unknown]
  - Testicular disorder [Unknown]
  - Congenital anomaly [Unknown]
  - Motor developmental delay [Unknown]
  - Abnormal behaviour [Unknown]
  - Developmental delay [Unknown]
  - Foetal exposure during pregnancy [Unknown]
  - Social (pragmatic) communication disorder [Unknown]
  - Intellectual disability [Unknown]
  - Speech disorder [Unknown]
  - Autism spectrum disorder [Unknown]
  - Aggression [Unknown]
  - Sleep disorder [Unknown]
  - Learning disorder [Unknown]
  - Congenital genitourinary abnormality [Unknown]
  - Hydrocephalus [Unknown]
  - Ear infection [Unknown]
  - Developmental coordination disorder [Unknown]
  - Speech disorder developmental [Unknown]
  - Nasopharyngitis [Unknown]

NARRATIVE: CASE EVENT DATE: 19890616
